FAERS Safety Report 4614842-0 (Version None)
Quarter: 2005Q1

REPORT INFORMATION
  Report Type: 
  Country: None (occurrence: None)
  Receive Date: 20050318
  Receipt Date: 20050318
  Transmission Date: 20050727
  Serious: Yes (Death)
  Sender: FDA-Public Use
  Company Number: None

PATIENT
  Age: 69 Year
  Sex: Female

DRUGS (1)
  1. LIPITOR [Suspect]
     Indication: BLOOD CHOLESTEROL INCREASED
     Dosage: ORAL
     Route: 048

REACTIONS (5)
  - ABDOMINAL DISTENSION [None]
  - DEHYDRATION [None]
  - HEPATIC FAILURE [None]
  - HEPATITIS A [None]
  - RENAL FAILURE [None]
